FAERS Safety Report 8991414 (Version 1)
Quarter: 2012Q4

REPORT INFORMATION
  Report Type: 
  Country: US (occurrence: US)
  Receive Date: 20121229
  Receipt Date: 20121229
  Transmission Date: 20130627
  Serious: No
  Sender: FDA-Public Use
  Company Number: US-009507513-1212USA010072

PATIENT
  Age: 35 Year
  Sex: Female

DRUGS (1)
  1. SINGULAIR [Suspect]
     Indication: HYPERSENSITIVITY
     Dosage: 2, 4 mg, Once
     Route: 048
     Dates: start: 20121220, end: 20121220

REACTIONS (2)
  - Heart rate increased [Recovering/Resolving]
  - Tachypnoea [Recovering/Resolving]
